FAERS Safety Report 21823735 (Version 1)
Quarter: 2023Q1

REPORT INFORMATION
  Report Type: Spontaneous
  Country: US (occurrence: None)
  Receive Date: 20230104
  Receipt Date: 20230104
  Transmission Date: 20230418
  Serious: No
  Sender: FDA-Public Use
  Company Number: None

PATIENT
  Sex: Female
  Weight: 78.75 kg

DRUGS (5)
  1. TRELEGY ELLIPTA [Suspect]
     Active Substance: FLUTICASONE FUROATE\UMECLIDINIUM BROMIDE\VILANTEROL TRIFENATATE
     Indication: Chronic obstructive pulmonary disease
     Dosage: FREQUENCY : DAILY;?
     Route: 055
     Dates: start: 20211011
  2. Gummy womens multi vitamin [Concomitant]
  3. vitamin B supplement [Concomitant]
  4. calcium chews [Concomitant]
  5. SCHIFF MOVE FREE [Concomitant]
     Active Substance: DIETARY SUPPLEMENT

REACTIONS (2)
  - Increased tendency to bruise [None]
  - Gingival bleeding [None]
